FAERS Safety Report 5303315-8 (Version None)
Quarter: 2007Q2

REPORT INFORMATION
  Report Type: 
  Country: None (occurrence: None)
  Receive Date: 20070420
  Receipt Date: 20070416
  Transmission Date: 20071010
  Serious: Yes (Death)
  Sender: FDA-Public Use
  Company Number: JP-GLAXOSMITHKLINE-B0466362A

PATIENT
  Age: 9 Year
  Sex: Female
  Weight: 36.3 kg

DRUGS (13)
  1. ALKERAN [Suspect]
     Indication: ALLOGENIC BONE MARROW TRANSPLANTATION THERAPY
     Dosage: 70MG PER DAY
     Route: 042
     Dates: start: 20051210, end: 20051212
  2. GRAN [Concomitant]
     Dates: start: 20051220, end: 20060103
  3. TACROLIMUS HYDRATE [Concomitant]
     Dosage: .7MG PER DAY
     Route: 065
     Dates: start: 20051214
  4. SOLU-MEDROL [Concomitant]
     Dosage: 500MG PER DAY
     Route: 042
     Dates: start: 20060113
  5. PREDONINE [Concomitant]
     Dosage: 60MG PER DAY
     Route: 065
     Dates: start: 20060116
  6. CELLCEPT [Concomitant]
     Dosage: 1000MG PER DAY
     Route: 048
     Dates: start: 20060116
  7. FLUMARIN [Concomitant]
     Dosage: 3G PER DAY
     Route: 042
     Dates: start: 20051213
  8. MAXIPIME [Concomitant]
     Dosage: 2G PER DAY
     Route: 042
     Dates: start: 20051219
  9. MEROPEN [Concomitant]
     Dosage: 1G PER DAY
     Route: 042
     Dates: start: 20051222
  10. MINOCYCLINE HCL [Concomitant]
     Dosage: 100MG PER DAY
     Route: 042
     Dates: start: 20051222
  11. TARGOCID [Concomitant]
     Dosage: 350MG PER DAY
     Route: 042
     Dates: start: 20051228
  12. SULPERAZON [Concomitant]
     Dosage: 1G PER DAY
     Route: 042
     Dates: start: 20051231
  13. PANSPORIN [Concomitant]
     Dosage: 3G PER DAY
     Dates: start: 20060131

REACTIONS (4)
  - MULTI-ORGAN FAILURE [None]
  - ORAL PAIN [None]
  - PNEUMONIA [None]
  - STOMATITIS [None]
